FAERS Safety Report 8325236 (Version 3)
Quarter: 2013Q2

REPORT INFORMATION
  Report Type: Report from Study
  Country: DE (occurrence: DE)
  Receive Date: 20120106
  Receipt Date: 20130404
  Transmission Date: 20140414
  Serious: Yes (Hospitalization)
  Sender: FDA-Public Use
  Company Number: DE-ROCHE-1027552

PATIENT
  Age: 38 Year
  Sex: Female
  Weight: 69 kg

DRUGS (9)
  1. BEVACIZUMAB [Suspect]
     Indication: RECTAL CANCER
     Route: 065
     Dates: start: 20120118, end: 20120118
  2. MORPHINE [Suspect]
     Indication: PRODUCT USED FOR UNKNOWN INDICATION
     Route: 062
  3. IRINOTECAN [Suspect]
     Indication: RECTAL CANCER METASTATIC
     Route: 065
     Dates: start: 20120118, end: 20120118
  4. FOLINIC ACID [Suspect]
     Indication: RECTAL CANCER METASTATIC
     Route: 065
     Dates: start: 20120118, end: 20120118
  5. 5-FLUOROURACIL [Suspect]
     Indication: RECTAL CANCER METASTATIC
     Route: 042
     Dates: start: 20120118, end: 20120120
  6. MIRTAZAPIN [Concomitant]
     Indication: DEPRESSION
     Route: 065
     Dates: start: 20110130
  7. PANTOZOL [Concomitant]
     Indication: DYSPEPSIA
     Route: 065
     Dates: start: 20110131
  8. LYRICA [Concomitant]
     Indication: DEPRESSION
     Route: 065
     Dates: start: 20110130
  9. CITALOPRAM [Concomitant]
     Indication: DEPRESSION
     Route: 065
     Dates: start: 20110131

REACTIONS (9)
  - General physical health deterioration [Not Recovered/Not Resolved]
  - Nausea [Not Recovered/Not Resolved]
  - Pain [Not Recovered/Not Resolved]
  - Dysaesthesia [Not Recovered/Not Resolved]
  - Anxiety [Not Recovered/Not Resolved]
  - Drug withdrawal syndrome [Not Recovered/Not Resolved]
  - Pyrexia [Unknown]
  - Infection [Unknown]
  - Pulmonary embolism [Not Recovered/Not Resolved]
